FAERS Safety Report 5523199-2 (Version None)
Quarter: 2007Q4

REPORT INFORMATION
  Report Type: 
  Country: None (occurrence: None)
  Receive Date: 20071116
  Receipt Date: 20071116
  Transmission Date: 20080405
  Serious: Yes (Death)
  Sender: FDA-Public Use
  Company Number: None

PATIENT
  Age: 81 Year
  Sex: Female
  Weight: 70.3075 kg

DRUGS (2)
  1. COREG CR [Suspect]
     Indication: HYPERTENSION
     Dosage: 80 MG. ONCE/DAY-X9072- PO
     Route: 048
     Dates: start: 20070601, end: 20071030
  2. TRIAMTERENE AND HYDROCHLOROTHIAZIDE [Suspect]
     Indication: HYPERTENSION
     Dosage: 75/50 TABS 1/2 TAB/DAY PO
     Route: 048
     Dates: start: 20070601, end: 20071030

REACTIONS (2)
  - DYSPNOEA [None]
  - MALAISE [None]
